FAERS Safety Report 5123100-X (Version None)
Quarter: 2006Q4

REPORT INFORMATION
  Report Type: 
  Country: None (occurrence: None)
  Receive Date: 20061009
  Receipt Date: 20060419
  Transmission Date: 20070319
  Serious: Yes (Death, Hospitalization, Other)
  Sender: FDA-Public Use
  Company Number: PHBS2006GB05803

PATIENT
  Age: 76 Year
  Sex: Female

DRUGS (15)
  1. CYCLOSPORINE [Suspect]
     Indication: PUSTULAR PSORIASIS
  2. METHOTREXATE [Suspect]
     Indication: PUSTULAR PSORIASIS
     Dosage: UNK, UNK
     Route: 048
     Dates: start: 19980307
  3. AZATHIOPRINE [Suspect]
     Indication: COLITIS ULCERATIVE
  4. REMICADE [Suspect]
     Indication: PUSTULAR PSORIASIS
     Dosage: 200 MG (3MG/KG)
     Dates: start: 20021206, end: 20040223
  5. ACITRETIN [Concomitant]
     Dosage: 20MG/DAY
     Dates: start: 20030120, end: 20040118
  6. HYDROXYUREA [Concomitant]
  7. ASPIRIN [Concomitant]
     Dosage: 75 MG/DAY
  8. BALSALAZIDE [Concomitant]
     Dosage: 750 MG/DAY
  9. BECLAZONE [Concomitant]
  10. BECLOBRATE [Concomitant]
     Dosage: 200 MG, TID
  11. BETNOVATE [Concomitant]
     Route: 047
  12. FUROSEMIDE [Concomitant]
     Dosage: 40 MG, QD
  13. IPRATROPIUM BROMIDE [Concomitant]
  14. LANSOPRAZOLE [Concomitant]
     Dosage: 15 MG, QD
  15. LATANOPROST [Concomitant]
     Dosage: 0.005% PRN
     Route: 047

REACTIONS (9)
  - COLITIS ULCERATIVE [None]
  - FATIGUE [None]
  - JAUNDICE [None]
  - LYMPHADENOPATHY [None]
  - NAUSEA [None]
  - PNEUMONITIS [None]
  - RENAL IMPAIRMENT [None]
  - T-CELL LYMPHOMA [None]
  - THERAPY NON-RESPONDER [None]
